FAERS Safety Report 8197852 (Version 4)
Quarter: 2013Q2

REPORT INFORMATION
  Report Type: Report from Study
  Country: JP (occurrence: JP)
  Receive Date: 20111025
  Receipt Date: 20130625
  Transmission Date: 20140414
  Serious: Yes (Life-Threatening, Hospitalization)
  Sender: FDA-Public Use
  Company Number: JP-JNJFOC-20111008551

PATIENT
  Age: 77 Year
  Sex: Male

DRUGS (16)
  1. DUROTEP MT [Suspect]
     Indication: PAIN
     Route: 062
     Dates: start: 20110514, end: 20110613
  2. DUROTEP MT [Suspect]
     Indication: PAIN
     Dosage: HALF PATCH APPLICATION (25+ HALF OF 12.5)
     Route: 062
     Dates: start: 20110423, end: 20110513
  3. DUROTEP MT [Suspect]
     Indication: PAIN
     Route: 062
     Dates: start: 20110318, end: 20110422
  4. CODEINE PHOSPHATE HEMIHYDRATE [Concomitant]
     Indication: PAIN
     Route: 048
     Dates: start: 20110318
  5. CODEINE PHOSPHATE HEMIHYDRATE [Concomitant]
     Indication: PAIN
     Route: 048
     Dates: start: 20110401
  6. CODEINE PHOSPHATE HEMIHYDRATE [Concomitant]
     Indication: PAIN
     Route: 048
     Dates: start: 20110408
  7. CODEINE PHOSPHATE HEMIHYDRATE [Concomitant]
     Indication: PAIN
     Dosage: AS NECESSARY
     Route: 048
     Dates: end: 20110613
  8. CODEINE PHOSPHATE HEMIHYDRATE [Concomitant]
     Indication: PAIN
     Route: 048
     Dates: start: 20110325
  9. VOLTAREN [Concomitant]
     Indication: PAIN
     Route: 054
     Dates: end: 20110613
  10. SHAKUYAKUKANZOUTOU [Concomitant]
     Indication: PAIN
     Route: 048
     Dates: end: 20110613
  11. TEGRETOL [Concomitant]
     Indication: PAIN
     Route: 048
     Dates: end: 20110613
  12. RIVOTRIL [Concomitant]
     Indication: PAIN
     Route: 048
     Dates: end: 20110613
  13. GABAPEN [Concomitant]
     Indication: PAIN
     Route: 048
     Dates: end: 20110613
  14. ROCEPHIN [Concomitant]
     Route: 042
     Dates: start: 20110611, end: 20110613
  15. ZOSYN [Concomitant]
     Route: 042
     Dates: start: 20110614, end: 20110615
  16. MEROPENEM HYDRATE [Concomitant]
     Route: 042
     Dates: start: 20110615, end: 20110704

REACTIONS (6)
  - Cholecystitis [Recovered/Resolved]
  - Cholelithiasis [Recovering/Resolving]
  - Septic shock [Recovering/Resolving]
  - Nausea [Recovering/Resolving]
  - Somnolence [Unknown]
  - Wrong technique in drug usage process [Unknown]
